FAERS Safety Report 25190199 (Version 1)
Quarter: 2025Q2

REPORT INFORMATION
  Report Type: Spontaneous
  Country: US (occurrence: US)
  Receive Date: 20250411
  Receipt Date: 20250411
  Transmission Date: 20250717
  Serious: Yes (Other)
  Sender: GALPHARM INTERNATIONAL
  Company Number: US-PERRIGO-25US004481

PATIENT
  Age: 68 Year

DRUGS (1)
  1. DAYTIME PE [Suspect]
     Active Substance: ACETAMINOPHEN\DEXTROMETHORPHAN HYDROBROMIDE\PHENYLEPHRINE HYDROCHLORIDE
     Indication: Product used for unknown indication
     Route: 048

REACTIONS (5)
  - Choking [Recovered/Resolved]
  - Foreign body in throat [Recovered/Resolved]
  - Pharyngeal haemorrhage [Unknown]
  - Anxiety [Unknown]
  - Expired product administered [Unknown]
